FAERS Safety Report 26193847 (Version 2)
Quarter: 2025Q4

REPORT INFORMATION
  Report Type: Spontaneous
  Country: US (occurrence: US)
  Receive Date: 20251224
  Receipt Date: 20251226
  Transmission Date: 20260117
  Serious: No
  Sender: ABBVIE
  Company Number: US-ABBVIE-6603270

PATIENT
  Age: 83 Year
  Sex: Female
  Weight: 76 kg

DRUGS (1)
  1. RESTASIS [Suspect]
     Active Substance: CYCLOSPORINE
     Indication: Vision blurred
     Dosage: FREQUENCY: 1 DROP ON EACH EYE TWICE A DAY
     Route: 047
     Dates: start: 20251122, end: 20251220

REACTIONS (2)
  - Eye irritation [Not Recovered/Not Resolved]
  - Liquid product physical issue [Unknown]

NARRATIVE: CASE EVENT DATE: 20250101
